FAERS Safety Report 18575257 (Version 1)
Quarter: 2020Q4

REPORT INFORMATION
  Report Type: Spontaneous
  Country: CA (occurrence: CA)
  Receive Date: 20201203
  Receipt Date: 20201203
  Transmission Date: 20210114
  Serious: Yes (Other)
  Sender: FDA-Public Use
  Company Number: CA-PFIZER INC-2020417106

PATIENT
  Age: 50 Year
  Sex: Female

DRUGS (2)
  1. SHINGRIX [Concomitant]
     Active Substance: RECOMBINANT VARICELLA ZOSTER VIRUS (VZV) GLYCOPROTEIN E
     Indication: IMMUNISATION
     Dosage: UNK
     Dates: start: 20201127, end: 20201127
  2. XELJANZ [Suspect]
     Active Substance: TOFACITINIB CITRATE
     Indication: COLITIS ULCERATIVE
     Dosage: 10 MG, 2X/DAY
     Route: 048
     Dates: start: 20201007

REACTIONS (9)
  - Abdominal tenderness [Not Recovered/Not Resolved]
  - Muscle spasms [Unknown]
  - Off label use [Unknown]
  - Stress [Unknown]
  - Product use issue [Unknown]
  - Facial bones fracture [Unknown]
  - Hypotension [Unknown]
  - Loss of consciousness [Unknown]
  - Fatigue [Unknown]

NARRATIVE: CASE EVENT DATE: 20201127
